FAERS Safety Report 4855732-8 (Version None)
Quarter: 2005Q4

REPORT INFORMATION
  Report Type: 
  Country: None (occurrence: None)
  Receive Date: 20051216
  Receipt Date: 20051206
  Transmission Date: 20060501
  Serious: Yes (Hospitalization)
  Sender: FDA-Public Use
  Company Number: PHRM2005FR03222

PATIENT
  Age: 75 Year
  Sex: Female
  Weight: 60 kg

DRUGS (5)
  1. TOCO [Concomitant]
     Route: 048
  2. RILUTEK [Concomitant]
     Dosage: 50 MG, BID
     Route: 048
     Dates: start: 20050618
  3. ISOBAR [Concomitant]
     Indication: ESSENTIAL HYPERTENSION
     Dosage: 1 DF, QD
     Route: 048
  4. VELITEN [Concomitant]
     Indication: CARDIOVASCULAR DISORDER
     Dosage: 2 DF, BID
     Route: 048
  5. VOLTAREN [Suspect]
     Indication: ARTHRALGIA
     Dosage: 50 MG, ONCE/SINGLE
     Route: 048
     Dates: start: 20050826, end: 20050826

REACTIONS (6)
  - DIARRHOEA [None]
  - HOT FLUSH [None]
  - HYPOTENSION [None]
  - LOSS OF CONSCIOUSNESS [None]
  - PARAESTHESIA [None]
  - URTICARIA [None]
